FAERS Safety Report 18570656 (Version 1)
Quarter: 2020Q4

REPORT INFORMATION
  Report Type: Spontaneous
  Country: US (occurrence: US)
  Receive Date: 20201202
  Receipt Date: 20201202
  Transmission Date: 20210114
  Serious: Yes (Hospitalization, Other)
  Sender: FDA-Public Use
  Company Number: US-MYLANLABS-2020M1098129

PATIENT
  Sex: Male

DRUGS (1)
  1. TRAMADOL. [Suspect]
     Active Substance: TRAMADOL
     Indication: PRODUCT USED FOR UNKNOWN INDICATION
     Dosage: UNK
     Route: 065

REACTIONS (13)
  - Drug dependence [Unknown]
  - Drug withdrawal syndrome [Unknown]
  - Insomnia [Unknown]
  - Anxiety [Unknown]
  - Hypertension [Unknown]
  - Colitis ulcerative [Unknown]
  - Pain [Unknown]
  - Overdose [Unknown]
  - Neuropathy peripheral [Unknown]
  - Deafness [Unknown]
  - Tinnitus [Unknown]
  - Stress [Unknown]
  - Depression [Unknown]
